FAERS Safety Report 17199136 (Version 1)
Quarter: 2019Q4

REPORT INFORMATION
  Report Type: Spontaneous
  Country: US (occurrence: US)
  Receive Date: 20191225
  Receipt Date: 20191225
  Transmission Date: 20200122
  Serious: Yes (Other)
  Sender: FDA-Public Use
  Company Number: US-MYLANLABS-2019M1125763

PATIENT
  Age: 20 Month
  Sex: Female

DRUGS (2)
  1. VIGABATRIN. [Concomitant]
     Active Substance: VIGABATRIN
     Indication: INFANTILE SPASMS
     Dosage: HIGH-DOSE
     Route: 065
  2. PREDNISONE. [Suspect]
     Active Substance: PREDNISONE
     Indication: INFANTILE SPASMS
     Dosage: 8 MILLIGRAM/KILOGRAM, QD
     Route: 065

REACTIONS (1)
  - Drug ineffective [Unknown]
